FAERS Safety Report 6923270-4 (Version None)
Quarter: 2010Q3

REPORT INFORMATION
  Report Type: 
  Country: None (occurrence: None)
  Receive Date: 20100813
  Receipt Date: 20100810
  Transmission Date: 20110219
  Serious: Yes (Death, Hospitalization)
  Sender: FDA-Public Use
  Company Number: DE-JNJFOC-20100802394

PATIENT
  Age: 76 Year
  Sex: Female
  Weight: 45 kg

DRUGS (12)
  1. HALOPERIDOL [Suspect]
     Indication: PSYCHOTIC DISORDER
     Route: 048
  2. HALOPERIDOL [Suspect]
     Route: 048
  3. EUNERPAN [Suspect]
     Indication: PSYCHOTIC DISORDER
     Route: 048
  4. MELPERON [Suspect]
     Indication: PSYCHOTIC DISORDER
     Route: 048
  5. MELNEURIN [Suspect]
     Indication: PSYCHOTIC DISORDER
     Dosage: 1 DAILY DOSE ON DISCHARGE DAY
     Route: 048
     Dates: start: 20100501
  6. DIAZEPAM [Concomitant]
     Indication: PSYCHOTIC DISORDER
     Route: 048
  7. LORAZEPAM [Concomitant]
     Indication: PSYCHOTIC DISORDER
     Route: 048
  8. LORAZEPAM [Concomitant]
     Route: 048
  9. XANAX [Concomitant]
     Route: 065
  10. XANAX [Concomitant]
     Route: 065
  11. CONCOR [Concomitant]
     Indication: PRODUCT USED FOR UNKNOWN INDICATION
     Route: 065
  12. IBUPROFEN [Concomitant]
     Route: 065

REACTIONS (6)
  - AKATHISIA [None]
  - APRAXIA [None]
  - CARDIAC FAILURE [None]
  - HEMISENSORY NEGLECT [None]
  - NEUROLEPTIC MALIGNANT SYNDROME [None]
  - PULMONARY EMBOLISM [None]
